FAERS Safety Report 11343930 (Version 1)
Quarter: 2015Q3

REPORT INFORMATION
  Report Type: Spontaneous
  Country: US (occurrence: US)
  Receive Date: 20150806
  Receipt Date: 20150806
  Transmission Date: 20151125
  Serious: No
  Sender: FDA-Public Use
  Company Number: US-PFIZER INC-2015248306

PATIENT
  Age: 57 Year
  Sex: Female
  Weight: 75 kg

DRUGS (2)
  1. CADUET [Suspect]
     Active Substance: AMLODIPINE BESYLATE\ATORVASTATIN CALCIUM
     Indication: BLOOD PRESSURE ABNORMAL
     Dosage: AMLODIPINE BESILATE 5 MG/ ATORVASTATIN CALCIUM 40 MG  (AT NIGHT)
  2. CADUET [Suspect]
     Active Substance: AMLODIPINE BESYLATE\ATORVASTATIN CALCIUM
     Dosage: AMLODIPINE BESILATE 10 MG/ ATORVASTATIN CALCIUM 80 MG, 1X/DAY (AT NIGHT)
     Route: 048

REACTIONS (2)
  - Hypotension [Unknown]
  - Hypertension [Unknown]

NARRATIVE: CASE EVENT DATE: 20150719
